FAERS Safety Report 23294871 (Version 2)
Quarter: 2024Q1

REPORT INFORMATION
  Report Type: Spontaneous
  Country: MX (occurrence: MX)
  Receive Date: 20231213
  Receipt Date: 20240122
  Transmission Date: 20240410
  Serious: Yes (Life-Threatening, Hospitalization)
  Sender: FDA-Public Use
  Company Number: MX-BEH-2023166337

PATIENT
  Age: 3 Year
  Sex: Female
  Weight: 16 kg

DRUGS (2)
  1. HUMAN IMMUNOGLOBULIN G [Suspect]
     Active Substance: HUMAN IMMUNOGLOBULIN G
     Indication: Immune thrombocytopenia
     Dosage: 2 VIALS (FIRST AND SECOND) FULLY ADMINISTERED
     Route: 042
     Dates: start: 20231129, end: 20231130
  2. HUMAN IMMUNOGLOBULIN G [Suspect]
     Active Substance: HUMAN IMMUNOGLOBULIN G
     Dosage: THIRD AND FOURTH VIAL, THIRD VIAL SUSPENDED
     Route: 042
     Dates: start: 20231129, end: 20231130

REACTIONS (6)
  - Septic shock [Recovered/Resolved]
  - Aeromonas test positive [Recovered/Resolved]
  - Product contamination microbial [Recovered/Resolved]
  - Pyrexia [Recovered/Resolved]
  - Tachycardia [Recovered/Resolved]
  - Hypotension [Recovered/Resolved]

NARRATIVE: CASE EVENT DATE: 20231130
